FAERS Safety Report 9804356 (Version 2)
Quarter: 2014Q1

REPORT INFORMATION
  Report Type: Spontaneous
  Country: US (occurrence: US)
  Receive Date: 20140108
  Receipt Date: 20140210
  Transmission Date: 20141002
  Serious: Yes (Other)
  Sender: FDA-Public Use
  Company Number: US-INCYTE CORPORATION-2014IN000002

PATIENT
  Age: 84 Year
  Sex: Male

DRUGS (13)
  1. JAKAFI [Suspect]
     Indication: MYELOFIBROSIS
     Dosage: 20 MG, QD
     Route: 048
     Dates: start: 201303
  2. DROXIA [Concomitant]
  3. LOMOTIL                            /00034001/ [Concomitant]
  4. LANSOPRAZOLE [Concomitant]
  5. ALLOPURINOL [Concomitant]
  6. ZYRTEC [Concomitant]
  7. ASPIRIN [Concomitant]
  8. VITAMIN B12                        /00056201/ [Concomitant]
  9. GLUCOSAMINE CHONDROITIN            /01625901/ [Concomitant]
  10. OMEGA 3                            /01334101/ [Concomitant]
  11. PROCRIT                            /00909301/ [Concomitant]
     Dosage: 2,000 UNITS/ML
  12. LEVOXYL [Concomitant]
  13. MULTIVITAMIN                       /00097801/ [Concomitant]

REACTIONS (2)
  - Haemolysis [Recovering/Resolving]
  - Anaemia [Recovering/Resolving]
